FAERS Safety Report 10744626 (Version 1)
Quarter: 2015Q1

REPORT INFORMATION
  Report Type: Spontaneous
  Country: US (occurrence: None)
  Receive Date: 20150126
  Receipt Date: 20150126
  Transmission Date: 20150721
  Serious: Yes (Disabling)
  Sender: FDA-Public Use
  Company Number: None

PATIENT
  Age: 62 Year
  Sex: Female

DRUGS (1)
  1. ATENOLOL. [Suspect]
     Active Substance: ATENOLOL
     Indication: BASEDOW^S DISEASE
     Dosage: 1 PILL ONCE A DAY, ONCE DAILY, TAKEN BY MOUTH
     Route: 048
     Dates: start: 20140930, end: 20150124

REACTIONS (4)
  - Muscle spasms [None]
  - Gout [None]
  - Pain in extremity [None]
  - Sleep disorder due to general medical condition, insomnia type [None]

NARRATIVE: CASE EVENT DATE: 20150117
